FAERS Safety Report 7347135-1 (Version None)
Quarter: 2011Q1

REPORT INFORMATION
  Report Type: 
  Country: None (occurrence: None)
  Receive Date: 20110311
  Receipt Date: 20110307
  Transmission Date: 20110831
  Serious: Yes (Death, Other)
  Sender: FDA-Public Use
  Company Number: PHHY2011CH18392

PATIENT
  Age: 4 Year
  Sex: Male

DRUGS (1)
  1. VALPROATE [Suspect]
     Indication: PARTIAL SEIZURES
     Dosage: UNK

REACTIONS (4)
  - GENE MUTATION [None]
  - ALPERS' DISEASE [None]
  - ACUTE HEPATIC FAILURE [None]
  - NEUROLOGICAL DECOMPENSATION [None]
